FAERS Safety Report 14604014 (Version 1)
Quarter: 2018Q1

REPORT INFORMATION
  Report Type: Spontaneous
  Country: US (occurrence: US)
  Receive Date: 20180305
  Receipt Date: 20180305
  Transmission Date: 20180509
  Serious: Yes (Disabling)
  Sender: FDA-Public Use
  Company Number: None

PATIENT
  Age: 52 Year
  Sex: Female
  Weight: 117.9 kg

DRUGS (1)
  1. LEVAQUIN [Suspect]
     Active Substance: LEVOFLOXACIN
     Indication: INFECTION PROPHYLAXIS
     Dosage: ?          QUANTITY:1 TABLET(S);?
     Route: 048
     Dates: start: 20180115, end: 20180122

REACTIONS (8)
  - Tendon pain [None]
  - Anxiety [None]
  - Muscle atrophy [None]
  - Arthralgia [None]
  - Insomnia [None]
  - Nervousness [None]
  - Pain [None]
  - Impaired healing [None]

NARRATIVE: CASE EVENT DATE: 20180115
